FAERS Safety Report 9171422 (Version 1)
Quarter: 2013Q1

REPORT INFORMATION
  Report Type: Spontaneous
  Country: IN (occurrence: IN)
  Receive Date: 20130319
  Receipt Date: 20130319
  Transmission Date: 20140127
  Serious: Yes (Other)
  Sender: FDA-Public Use
  Company Number: IN-PFIZER INC-2013070404

PATIENT
  Age: 30 Year
  Sex: Female

DRUGS (1)
  1. LOETTE [Suspect]
     Indication: CONTRACEPTION
     Dosage: UNK
     Dates: start: 2007

REACTIONS (7)
  - Embolism [Recovered/Resolved]
  - Benign intracranial hypertension [Unknown]
  - Papilloedema [Unknown]
  - Headache [Unknown]
  - Visual impairment [Unknown]
  - Nausea [Unknown]
  - Osteonecrosis [Unknown]
